FAERS Safety Report 6383126-5 (Version None)
Quarter: 2009Q3

REPORT INFORMATION
  Report Type: 
  Country: None (occurrence: None)
  Receive Date: 20090928
  Receipt Date: 20090915
  Transmission Date: 20100115
  Serious: Yes (Hospitalization, Other)
  Sender: FDA-Public Use
  Company Number: 2009AP003547

PATIENT
  Age: 69 Year
  Sex: Female
  Weight: 62.5 kg

DRUGS (7)
  1. PAROXETINE HYDROCHLORIDE [Suspect]
     Indication: MAJOR DEPRESSION
     Dosage: 40 MG; QD;
  2. FLECAINIDE ACETATE [Suspect]
     Indication: ATRIAL FIBRILLATION
     Dosage: 100 MG; BID;, 50 MG; BID;
  3. CARVEDILOL [Concomitant]
  4. WARFARIN SODIUM [Concomitant]
  5. FOLIC ACID [Concomitant]
  6. LEVOTHYROXINE [Concomitant]
  7. PANTOPRAZOLE SODIUM [Concomitant]

REACTIONS (13)
  - AGGRESSION [None]
  - BLOOD CREATININE INCREASED [None]
  - DECREASED APPETITE [None]
  - DELIRIUM [None]
  - DIET REFUSAL [None]
  - DRUG EXPOSURE DURING PREGNANCY [None]
  - DRUG LEVEL ABOVE THERAPEUTIC [None]
  - ELECTROCARDIOGRAM QT PROLONGED [None]
  - INHIBITORY DRUG INTERACTION [None]
  - PARANOIA [None]
  - REFUSAL OF TREATMENT BY PATIENT [None]
  - SCREAMING [None]
  - SOCIAL AVOIDANT BEHAVIOUR [None]
